FAERS Safety Report 6646170-6 (Version None)
Quarter: 2010Q1

REPORT INFORMATION
  Report Type: 
  Country: None (occurrence: None)
  Receive Date: 20100318
  Receipt Date: 20100312
  Transmission Date: 20100710
  Serious: Yes (Hospitalization)
  Sender: FDA-Public Use
  Company Number: DSA_33785_2009

PATIENT
  Sex: Female

DRUGS (11)
  1. XENAZINE [Suspect]
     Indication: DYSTONIA
     Dosage: (25 MG QID ORAL), (25 MG QID ORAL), (1/2 OF 12.5 MG TABLET DAILY ORAL)
     Route: 048
     Dates: start: 20081216
  2. XENAZINE [Suspect]
     Indication: DYSTONIA
     Dosage: (25 MG QID ORAL), (25 MG QID ORAL), (1/2 OF 12.5 MG TABLET DAILY ORAL)
     Route: 048
     Dates: start: 20090901
  3. XENAZINE [Suspect]
     Indication: DYSTONIA
     Dosage: (25 MG QID ORAL), (25 MG QID ORAL), (1/2 OF 12.5 MG TABLET DAILY ORAL)
     Route: 048
     Dates: start: 20100201
  4. FLOVENT [Concomitant]
  5. SINGULAIR [Concomitant]
  6. NEXIUM [Concomitant]
  7. PREDNISONE TAB [Concomitant]
  8. LEVOTHYROXINE SODIUM [Concomitant]
  9. PULMICORT [Concomitant]
  10. DUONEB [Concomitant]
  11. SYMBICORT [Concomitant]

REACTIONS (4)
  - DEPRESSION [None]
  - DROOLING [None]
  - DYSTONIA [None]
  - PERFORMANCE STATUS DECREASED [None]
